FAERS Safety Report 12876402 (Version 1)
Quarter: 2016Q4

REPORT INFORMATION
  Report Type: Spontaneous
  Country: US (occurrence: US)
  Receive Date: 20161021
  Receipt Date: 20161021
  Transmission Date: 20170207
  Serious: No
  Sender: FDA-Public Use
  Company Number: None

PATIENT
  Age: 71 Year
  Sex: Female
  Weight: 54 kg

DRUGS (5)
  1. LATANOPROST. [Concomitant]
     Active Substance: LATANOPROST
  2. VIMPAT [Suspect]
     Active Substance: LACOSAMIDE
     Indication: EPILEPSY
     Dosage: ?          QUANTITY:1 TABLET(S);?
     Route: 048
     Dates: start: 20160626, end: 20160710
  3. COPAXONE [Concomitant]
     Active Substance: GLATIRAMER ACETATE
  4. LAMOTRITINE [Concomitant]
  5. DONEPEZIL. [Concomitant]
     Active Substance: DONEPEZIL

REACTIONS (6)
  - Thinking abnormal [None]
  - Dizziness [None]
  - Gait disturbance [None]
  - Balance disorder [None]
  - Fall [None]
  - Suicidal ideation [None]

NARRATIVE: CASE EVENT DATE: 20160626
